FAERS Safety Report 7552766-X (Version None)
Quarter: 2011Q2

REPORT INFORMATION
  Report Type: 
  Country: None (occurrence: None)
  Receive Date: 20110616
  Receipt Date: 20110615
  Transmission Date: 20111010
  Serious: Yes (Other)
  Sender: FDA-Public Use
  Company Number: US-PFIZER INC-2011131485

PATIENT
  Sex: Male
  Weight: 81.633 kg

DRUGS (3)
  1. CHANTIX [Suspect]
     Dosage: 0.5 MG, 1X/DAY
     Dates: start: 20110603, end: 20110606
  2. ACETAMINOPHEN, ASPIRIN, AND CODEINE PHOSPHATE [Concomitant]
     Indication: MIGRAINE
     Dosage: UNK
  3. CHANTIX [Suspect]
     Indication: SMOKING CESSATION THERAPY
     Dosage: 1 MG, 1X/DAY
     Route: 048
     Dates: start: 20110602, end: 20110601

REACTIONS (4)
  - ABNORMAL BEHAVIOUR [None]
  - FEELING ABNORMAL [None]
  - ANGER [None]
  - NAUSEA [None]
